FAERS Safety Report 7658793-6 (Version None)
Quarter: 2011Q3

REPORT INFORMATION
  Report Type: 
  Country: None (occurrence: None)
  Receive Date: 20110805
  Receipt Date: 20110805
  Transmission Date: 20111222
  Serious: Yes (Other)
  Sender: FDA-Public Use
  Company Number: None

PATIENT
  Age: 8 Year
  Sex: Male
  Weight: 43.091 kg

DRUGS (3)
  1. ABILIFY [Concomitant]
     Route: 048
  2. INTUNIV [Concomitant]
  3. LAMOTRIGINE [Suspect]
     Indication: BIPOLAR DISORDER
     Dosage: 150MG
     Route: 048
     Dates: start: 20110201, end: 20110501

REACTIONS (1)
  - TIC [None]
